FAERS Safety Report 21384938 (Version 2)
Quarter: 2025Q1

REPORT INFORMATION
  Report Type: Report from Study
  Country: US (occurrence: US)
  Receive Date: 20220928
  Receipt Date: 20250326
  Transmission Date: 20250409
  Serious: Yes (Hospitalization, Other)
  Sender: AVEO PHARMACEUTICALS
  Company Number: US-AVEO ONCOLOGY-2022-AVEO-US000323

PATIENT
  Age: 66 Year

DRUGS (15)
  1. TIVOZANIB [Suspect]
     Active Substance: TIVOZANIB
     Indication: Renal cell carcinoma
     Dosage: 0.89 MG, DAILY FOR 21 DAYS WITH 7 DAYS OFF (28-DAY CYCLE)
  2. ACETAMINOPHEN [Concomitant]
     Active Substance: ACETAMINOPHEN
  3. CANNABIS SATIVA SUBSP. INDICA TOP [Concomitant]
     Active Substance: CANNABIS SATIVA SUBSP. INDICA TOP
  4. ELIQUIS [Concomitant]
     Active Substance: APIXABAN
  5. FEXOFENADINE [Concomitant]
     Active Substance: FEXOFENADINE HYDROCHLORIDE
  6. GABAPENTIN [Concomitant]
     Active Substance: GABAPENTIN
  7. XOPENEX HFA [Concomitant]
     Active Substance: LEVALBUTEROL TARTRATE
  8. LEVOTHYROXINE [Concomitant]
     Active Substance: LEVOTHYROXINE
  9. LISINOPRIL [Concomitant]
     Active Substance: LISINOPRIL
  10. PEPCID [Concomitant]
     Active Substance: FAMOTIDINE
  11. PREDNISONE [Concomitant]
     Active Substance: PREDNISONE
  12. PROCHLORPERAZINE [Concomitant]
     Active Substance: PROCHLORPERAZINE
  13. VITAMIN D3 [Concomitant]
     Active Substance: CHOLECALCIFEROL
  14. ALLEGRA [Concomitant]
     Active Substance: FEXOFENADINE HYDROCHLORIDE
  15. AMLODIPINE [Concomitant]
     Active Substance: AMLODIPINE BESYLATE

REACTIONS (1)
  - Hypothyroidism [Unknown]
